FAERS Safety Report 8181195-3 (Version None)
Quarter: 2012Q1

REPORT INFORMATION
  Report Type: 
  Country: None (occurrence: None)
  Receive Date: 20120302
  Receipt Date: 20111116
  Transmission Date: 20120608
  Serious: Yes (Life-Threatening, Disabling)
  Sender: FDA-Public Use
  Company Number: JP-GLAXOSMITHKLINE-B0763466A

PATIENT
  Sex: Female
  Weight: 56 kg

DRUGS (9)
  1. DESMOPRESSIN ACETATE [Concomitant]
     Indication: DIABETES INSIPIDUS
     Route: 045
  2. TYKERB [Suspect]
     Indication: BREAST CANCER
     Dosage: 1250MG PER DAY
     Route: 048
     Dates: start: 20101012, end: 20110621
  3. CORTRIL [Concomitant]
     Indication: ADRENAL INSUFFICIENCY
     Route: 048
  4. CHINESE MEDICINE [Concomitant]
     Indication: CONSTIPATION
     Route: 048
  5. XELODA [Suspect]
     Indication: PRODUCT USED FOR UNKNOWN INDICATION
     Dosage: 1800MG PER DAY
     Route: 048
     Dates: start: 20101012, end: 20110614
  6. LENDORMIN [Concomitant]
     Indication: INSOMNIA
     Route: 048
  7. CHINESE MEDICINE [Concomitant]
     Indication: MALAISE
     Route: 048
  8. DECADRON [Concomitant]
     Indication: PROPHYLAXIS
     Dates: start: 20110719, end: 20110913
  9. FAMOTIDINE [Concomitant]
     Indication: GASTRITIS
     Route: 048

REACTIONS (4)
  - PALMAR-PLANTAR ERYTHRODYSAESTHESIA SYNDROME [None]
  - HEPATIC FUNCTION ABNORMAL [None]
  - HEPATIC ENZYME INCREASED [None]
  - FEMORAL NECK FRACTURE [None]
